FAERS Safety Report 7069793-1 (Version None)
Quarter: 2010Q4

REPORT INFORMATION
  Report Type: 
  Country: None (occurrence: None)
  Receive Date: 20101028
  Receipt Date: 20100527
  Transmission Date: 20110411
  Serious: No
  Sender: FDA-Public Use
  Company Number: US-WYE-H15440710

PATIENT
  Sex: Female
  Weight: 61.74 kg

DRUGS (7)
  1. PROTONIX [Suspect]
     Indication: ABDOMINAL PAIN
     Route: 048
     Dates: start: 20100526
  2. RESTASIS [Concomitant]
  3. MULTI-VITAMINS [Concomitant]
  4. FISH OIL, HYDROGENATED [Suspect]
     Indication: CARDIOVASCULAR EVENT PROPHYLAXIS
     Route: 048
     Dates: start: 20100501, end: 20100525
  5. AZELAIC ACID [Concomitant]
  6. SYNTHROID [Concomitant]
  7. HYOSCYAMINE [Suspect]
     Indication: ABDOMINAL PAIN
     Route: 060
     Dates: start: 20100517, end: 20100527

REACTIONS (2)
  - BLISTER [None]
  - WEIGHT DECREASED [None]
